FAERS Safety Report 13263942 (Version 6)
Quarter: 2017Q3

REPORT INFORMATION
  Report Type: Report from Study
  Country: US (occurrence: US)
  Receive Date: 20170223
  Receipt Date: 20170706
  Transmission Date: 20171127
  Serious: Yes (Hospitalization, Other)
  Sender: FDA-Public Use
  Company Number: US-BAYER-2017-019080

PATIENT
  Age: 79 Year
  Sex: Female

DRUGS (3)
  1. STIVARGA [Suspect]
     Active Substance: REGORAFENIB
     Indication: NEOPLASM MALIGNANT
     Dosage: 160 MG, QD
     Route: 048
  2. STIVARGA [Suspect]
     Active Substance: REGORAFENIB
     Indication: NEOPLASM MALIGNANT
     Dosage: 160 MG, QD
     Route: 048
  3. STIVARGA [Suspect]
     Active Substance: REGORAFENIB
     Indication: NEOPLASM MALIGNANT
     Dosage: 160 MG, QD
     Route: 048
     Dates: start: 20161230

REACTIONS (16)
  - Stomatitis [Recovering/Resolving]
  - Intentional product misuse [None]
  - Throat lesion [None]
  - Cheilitis [None]
  - Urinary incontinence [Not Recovered/Not Resolved]
  - Oral mucosal blistering [Not Recovered/Not Resolved]
  - Musculoskeletal pain [Recovering/Resolving]
  - Stomatitis [Not Recovered/Not Resolved]
  - Small intestinal obstruction [None]
  - Pneumonia [Recovering/Resolving]
  - Vaginal lesion [Not Recovered/Not Resolved]
  - Malaise [None]
  - Drug dose omission [None]
  - Diarrhoea [Recovering/Resolving]
  - Dehydration [None]
  - Skin discolouration [Not Recovered/Not Resolved]

NARRATIVE: CASE EVENT DATE: 20161230
